FAERS Safety Report 7580837-0 (Version None)
Quarter: 2011Q2

REPORT INFORMATION
  Report Type: 
  Country: None (occurrence: None)
  Receive Date: 20110629
  Receipt Date: 20110624
  Transmission Date: 20111010
  Serious: Yes (Disabling, Other)
  Sender: FDA-Public Use
  Company Number: US-PFIZER INC-2011141165

PATIENT
  Sex: Male
  Weight: 125 kg

DRUGS (11)
  1. GLUCOTROL [Suspect]
     Indication: DIABETES MELLITUS
     Dosage: 5 MG, 2X/DAY
     Route: 048
  2. NIASPAN [Suspect]
     Indication: BLOOD CHOLESTEROL INCREASED
     Dosage: 1000 MG, DAILY
     Route: 048
  3. ASPIRIN [Concomitant]
     Indication: ANTICOAGULANT THERAPY
     Dosage: 81 MG, AS NEEDED
     Route: 048
  4. LISINOPRIL [Concomitant]
     Indication: HYPERTENSION
     Dosage: 20 MG, DAILY
     Route: 048
  5. CLONIDINE HYDROCHLORIDE [Concomitant]
     Dosage: 0.1 MG, DAILY
     Route: 048
  6. ASPIRIN [Concomitant]
     Indication: PRURITUS
  7. ASPIRIN [Concomitant]
     Indication: PARAESTHESIA
  8. PLAVIX [Concomitant]
     Indication: ANTICOAGULANT THERAPY
     Dosage: 75 MG, DAILY
     Route: 048
  9. LOVASTATIN [Concomitant]
     Dosage: 5 MG, DAILY
     Route: 048
  10. KLOR-CON M20 [Concomitant]
     Indication: MINERAL SUPPLEMENTATION
     Dosage: 20 MEQ, DAILY
     Route: 048
  11. FUROSEMIDE [Concomitant]
     Indication: DIURETIC THERAPY
     Dosage: 40 MG, DAILY
     Route: 048

REACTIONS (4)
  - DEAFNESS [None]
  - PARAESTHESIA [None]
  - CARDIAC OPERATION [None]
  - PRURITUS [None]
